FAERS Safety Report 16946909 (Version 1)
Quarter: 2019Q4

REPORT INFORMATION
  Report Type: Spontaneous
  Country: HK (occurrence: HK)
  Receive Date: 20191022
  Receipt Date: 20191022
  Transmission Date: 20200122
  Serious: Yes (Other)
  Sender: FDA-Public Use
  Company Number: HK-SEPTODONT-201905564

PATIENT
  Age: 7 Year
  Sex: Female

DRUGS (1)
  1. LIDOCAINE HYDROCHLORIDE 2%, EPINEPHRINE 1:80000 [Suspect]
     Active Substance: EPINEPHRINE\LIDOCAINE HYDROCHLORIDE
     Indication: DENTAL LOCAL ANAESTHESIA
     Dosage: VIA BUCCAL INFILTRATION
     Route: 004

REACTIONS (3)
  - Rash erythematous [Recovered/Resolved]
  - Angioedema [Recovered/Resolved]
  - Type IV hypersensitivity reaction [Recovered/Resolved]
